FAERS Safety Report 5022954-5 (Version None)
Quarter: 2006Q2

REPORT INFORMATION
  Report Type: 
  Country: None (occurrence: None)
  Receive Date: 20060426
  Receipt Date: 20060317
  Transmission Date: 20061013
  Serious: Yes (Other)
  Sender: FDA-Public Use
  Company Number: 2006038929

PATIENT
  Sex: Female
  Weight: 62.1428 kg

DRUGS (4)
  1. LYRICA [Suspect]
     Indication: BACK PAIN
     Dosage: 150 MG (75 MG, 2 IN 1 D)
     Dates: start: 20050101
  2. METHADONE HCL [Suspect]
     Indication: BACK PAIN
     Dosage: 20 (10 MG, 2 IN 1 D)
     Dates: start: 20050101
  3. SLEEP AID (SCOPOLAMINE AMINOXIDE HYDROBROMIDE) [Concomitant]
  4. IBUPROFEN [Concomitant]

REACTIONS (6)
  - ARTHRALGIA [None]
  - ARTHRITIS [None]
  - HYPOAESTHESIA [None]
  - NAUSEA [None]
  - OEDEMA PERIPHERAL [None]
  - STOMACH DISCOMFORT [None]
